FAERS Safety Report 25771297 (Version 1)
Quarter: 2025Q3

REPORT INFORMATION
  Report Type: Spontaneous
  Country: US (occurrence: US)
  Receive Date: 20250908
  Receipt Date: 20250908
  Transmission Date: 20251021
  Serious: No
  Sender: DOMPE FARMACEUTICI
  Company Number: US-FARMAPROD-202504-1162

PATIENT
  Sex: Female

DRUGS (10)
  1. OXERVATE [Suspect]
     Active Substance: CENEGERMIN-BKBJ
     Indication: Neurotrophic keratopathy
     Route: 047
     Dates: start: 20250403
  2. OXERVATE [Suspect]
     Active Substance: CENEGERMIN-BKBJ
  3. VALTREX [Concomitant]
     Active Substance: VALACYCLOVIR HYDROCHLORIDE
  4. NEPAFENAC;PREDNISOLONE [Concomitant]
  5. TIMOLOL [Concomitant]
     Active Substance: TIMOLOL
  6. BACLOFEN [Concomitant]
     Active Substance: BACLOFEN
  7. DULOXETINE HYDROCHLORIDE [Concomitant]
     Active Substance: DULOXETINE HYDROCHLORIDE
  8. CRESTOR [Concomitant]
     Active Substance: ROSUVASTATIN CALCIUM
  9. GABAPENTIN [Concomitant]
     Active Substance: GABAPENTIN
  10. VITAMIN C [Concomitant]
     Active Substance: ASCORBIC ACID

REACTIONS (9)
  - Eye irritation [Not Recovered/Not Resolved]
  - Ocular hyperaemia [Recovering/Resolving]
  - Vision blurred [Not Recovered/Not Resolved]
  - Ocular hyperaemia [Not Recovered/Not Resolved]
  - Eye inflammation [Not Recovered/Not Resolved]
  - Headache [Recovering/Resolving]
  - Herpes zoster reactivation [Not Recovered/Not Resolved]
  - Nausea [Recovering/Resolving]
  - Intraocular pressure increased [Recovering/Resolving]
